FAERS Safety Report 8359374-1 (Version None)
Quarter: 2012Q2

REPORT INFORMATION
  Report Type: 
  Country: None (occurrence: None)
  Receive Date: 20120515
  Receipt Date: 20120510
  Transmission Date: 20120825
  Serious: No
  Sender: FDA-Public Use
  Company Number: US-PFIZER INC-2012111582

PATIENT
  Sex: Female
  Weight: 85.714 kg

DRUGS (7)
  1. LISINOPRIL [Concomitant]
     Indication: HYPERTENSION
     Dosage: 20 MG, UNK
  2. METOPROLOL [Concomitant]
     Dosage: 25 MG, 1X/DAY
  3. NEXIUM [Concomitant]
     Indication: GASTRIC DISORDER
     Dosage: 40 MG, 1X/DAY
  4. EFFEXOR XR [Suspect]
     Indication: DEPRESSION
     Dosage: 75 MG, 1X/DAY
     Route: 048
     Dates: end: 20120301
  5. PRISTIQ [Suspect]
     Indication: DEPRESSION
     Dosage: 50 MG, 1X/DAY
     Route: 048
     Dates: start: 20120301
  6. FUROSEMIDE [Concomitant]
     Dosage: 40 MG, 1X/DAY
  7. FLECAINIDE [Concomitant]
     Dosage: 50 MG, UNK

REACTIONS (4)
  - DECREASED APPETITE [None]
  - INSOMNIA [None]
  - GASTRIC DISORDER [None]
  - NAUSEA [None]
